FAERS Safety Report 13228012 (Version 16)
Quarter: 2018Q2

REPORT INFORMATION
  Report Type: Spontaneous
  Country: US (occurrence: US)
  Receive Date: 20170213
  Receipt Date: 20180622
  Transmission Date: 20180711
  Serious: Yes (Life-Threatening, Hospitalization, Other)
  Sender: FDA-Public Use
  Company Number: US-ACTELION-A-US2017-147998

PATIENT
  Age: 66 Year
  Sex: Male
  Weight: 68.48 kg

DRUGS (39)
  1. UPTRAVI [Suspect]
     Active Substance: SELEXIPAG
     Dosage: 200 MCG, BID
     Route: 048
  2. COENZYME Q10 [Concomitant]
     Active Substance: UBIDECARENONE
  3. NEXIUM [Concomitant]
     Active Substance: ESOMEPRAZOLE MAGNESIUM
     Dosage: 40 MG, QPM
     Route: 048
  4. MAGNESIUM [Concomitant]
     Active Substance: MAGNESIUM
  5. BUMETANIDE. [Concomitant]
     Active Substance: BUMETANIDE
     Dosage: 2 MG, BID
  6. FLONASE [Concomitant]
     Active Substance: FLUTICASONE PROPIONATE
     Dosage: 50 MCG,2 SPRAYS IN EACH NOSTRIL, QD
     Route: 045
     Dates: start: 20180324
  7. KEFLEX [Concomitant]
     Active Substance: CEPHALEXIN
     Dosage: UNK, BID, PRN
     Route: 061
  8. UPTRAVI [Suspect]
     Active Substance: SELEXIPAG
     Dosage: 600 MCG, BID
     Route: 048
  9. UPTRAVI [Suspect]
     Active Substance: SELEXIPAG
     Dosage: 200 MCG, QAM
     Route: 048
  10. EPLERENONE. [Concomitant]
     Active Substance: EPLERENONE
  11. LIPITOR [Concomitant]
     Active Substance: ATORVASTATIN CALCIUM
     Dosage: 40 MG, QD
     Route: 048
  12. OXYGEN. [Concomitant]
     Active Substance: OXYGEN
     Dosage: 5 L/MIN, UNK
  13. SALINE [Concomitant]
     Active Substance: SODIUM CHLORIDE
     Route: 045
  14. ATORVASTATIN [Concomitant]
     Active Substance: ATORVASTATIN
     Dosage: 40 MG, UNK
  15. UPTRAVI [Suspect]
     Active Substance: SELEXIPAG
     Dosage: 400 MCG, QPM
     Route: 048
  16. ADCIRCA [Concomitant]
     Active Substance: TADALAFIL
     Dosage: 20 MG, QD
     Route: 048
  17. COMBIVENT RESPIMAT [Concomitant]
     Active Substance: ALBUTEROL SULFATE\IPRATROPIUM BROMIDE
  18. UPTRAVI [Suspect]
     Active Substance: SELEXIPAG
     Dosage: 200 MCG, PM
     Route: 048
  19. UPTRAVI [Suspect]
     Active Substance: SELEXIPAG
     Dosage: UNK
     Route: 048
     Dates: start: 20170203
  20. ASPIRIN. [Concomitant]
     Active Substance: ASPIRIN
     Dosage: 81 MG, QD
     Route: 048
  21. PLAVIX [Concomitant]
     Active Substance: CLOPIDOGREL BISULFATE
     Dosage: 75 MG, QD
  22. SODIUM CHLORIDE. [Concomitant]
     Active Substance: SODIUM CHLORIDE
     Dosage: 1 SPRAY EACH NOSTRIL QD, PRN
     Route: 045
  23. UPTRAVI [Suspect]
     Active Substance: SELEXIPAG
     Dosage: UNK
     Route: 048
     Dates: start: 20170202, end: 20170202
  24. LETAIRIS [Suspect]
     Active Substance: AMBRISENTAN
     Indication: PULMONARY ARTERIAL HYPERTENSION
     Dosage: 10 MG, QD
     Route: 065
     Dates: start: 20161004
  25. LASIX [Concomitant]
     Active Substance: FUROSEMIDE
     Dosage: 40 MG, QD
     Route: 048
  26. NEURONTIN [Concomitant]
     Active Substance: GABAPENTIN
     Dosage: 600 MG, BID
     Route: 048
  27. TESSALON [Concomitant]
     Active Substance: BENZONATATE
     Dosage: 100 MG, Q4HRS
     Route: 048
  28. UPTRAVI [Suspect]
     Active Substance: SELEXIPAG
     Indication: PULMONARY ARTERIAL HYPERTENSION
     Dosage: 200MCG QAM, 400MCG QPM
     Route: 048
     Dates: start: 20171214, end: 20180606
  29. UPTRAVI [Suspect]
     Active Substance: SELEXIPAG
     Dosage: 1000 MCG, QD, 400 MCG IN AM, 600 MCG IN PM
     Route: 048
     Dates: end: 20170201
  30. UPTRAVI [Suspect]
     Active Substance: SELEXIPAG
     Dosage: 800 MCG, BID
     Route: 048
  31. TEMOVATE [Concomitant]
     Active Substance: CLOBETASOL PROPIONATE
     Dosage: 0.05 %, BID
     Route: 061
  32. VOLTAREN [Concomitant]
     Active Substance: DICLOFENAC SODIUM
     Dosage: 4 G, TID
     Route: 061
  33. INSPRA [Concomitant]
     Active Substance: EPLERENONE
     Indication: PULMONARY HYPERTENSION
     Dosage: 25 MG, QD
     Route: 048
  34. VALTREX [Concomitant]
     Active Substance: VALACYCLOVIR HYDROCHLORIDE
     Dosage: 500 MG, QD
     Route: 048
  35. UPTRAVI [Suspect]
     Active Substance: SELEXIPAG
     Dosage: 400 MCG, BID
     Route: 048
     Dates: start: 20161214
  36. UPTRAVI [Suspect]
     Active Substance: SELEXIPAG
     Dosage: 400 MCG, AM/ 600 MCG PM
     Route: 048
  37. KLONOPIN [Concomitant]
     Active Substance: CLONAZEPAM
     Dosage: 0.5 MG, BID
     Route: 048
  38. NORCO [Concomitant]
     Active Substance: ACETAMINOPHEN\HYDROCODONE BITARTRATE
     Dosage: 5-325 MG, Q6HRS
     Route: 048
  39. BACTROBAN [Concomitant]
     Active Substance: MUPIROCIN\MUPIROCIN CALCIUM

REACTIONS (32)
  - Acute respiratory failure [Recovering/Resolving]
  - Haemoptysis [Recovering/Resolving]
  - Nausea [Unknown]
  - Neuralgia [Unknown]
  - Fibromyalgia [Not Recovered/Not Resolved]
  - Headache [Unknown]
  - Fluid overload [Recovering/Resolving]
  - Dyspnoea [Recovering/Resolving]
  - Fluid retention [Recovering/Resolving]
  - Pulmonary arterial hypertension [Recovering/Resolving]
  - Hypoxia [Recovering/Resolving]
  - Mobility decreased [Unknown]
  - Pain [Unknown]
  - Arthralgia [Unknown]
  - Fatigue [Not Recovered/Not Resolved]
  - Weight decreased [Recovering/Resolving]
  - Intermittent claudication [Unknown]
  - Migraine [Unknown]
  - Unevaluable event [Unknown]
  - Neck pain [Unknown]
  - Pulmonary arterial pressure increased [Recovering/Resolving]
  - Oedema peripheral [Recovering/Resolving]
  - Cardiac failure congestive [Recovering/Resolving]
  - Bone pain [Unknown]
  - Rhinitis [Recovering/Resolving]
  - Condition aggravated [Recovering/Resolving]
  - Angiopathy [Unknown]
  - Myalgia [Unknown]
  - Chest discomfort [Unknown]
  - Pulmonary oedema [Recovering/Resolving]
  - Bowel movement irregularity [Unknown]
  - Pain in jaw [Unknown]

NARRATIVE: CASE EVENT DATE: 20170202
